FAERS Safety Report 9435371 (Version 1)
Quarter: 2013Q3

REPORT INFORMATION
  Report Type: Spontaneous
  Country: US (occurrence: US)
  Receive Date: 20130801
  Receipt Date: 20130801
  Transmission Date: 20140515
  Serious: Yes (Hospitalization)
  Sender: FDA-Public Use
  Company Number: US-GLAXOSMITHKLINE-A1035611A

PATIENT
  Age: 61 Year
  Sex: Female

DRUGS (1)
  1. PAXIL [Suspect]
     Indication: DEPRESSION
     Dosage: 30MG PER DAY
     Route: 048
     Dates: start: 2007, end: 20130717

REACTIONS (8)
  - Suicidal ideation [Unknown]
  - Drug withdrawal syndrome [Unknown]
  - Influenza like illness [Unknown]
  - Mood swings [Unknown]
  - Balance disorder [Unknown]
  - Tremor [Unknown]
  - Chills [Unknown]
  - Hyperhidrosis [Unknown]
